FAERS Safety Report 8474855-8 (Version None)
Quarter: 2012Q2

REPORT INFORMATION
  Report Type: 
  Country: None (occurrence: None)
  Receive Date: 20120628
  Receipt Date: 20120619
  Transmission Date: 20120825
  Serious: Yes (Hospitalization)
  Sender: FDA-Public Use
  Company Number: FR-ASTRAZENECA-2012SE33691

PATIENT
  Age: 32 Year
  Sex: Female

DRUGS (5)
  1. HALDOL [Concomitant]
     Indication: SCHIZOPHRENIA
     Route: 048
  2. LEPTICUR [Concomitant]
  3. POLYETHYLENE GLYCOL [Concomitant]
     Dates: end: 20120501
  4. QUETIAPINE FUMARATE [Suspect]
     Indication: SCHIZOPHRENIA
     Route: 048
     Dates: start: 20111122, end: 20120515
  5. XANAX [Concomitant]
     Route: 048

REACTIONS (10)
  - WEIGHT INCREASED [None]
  - RASH PRURITIC [None]
  - APHONIA [None]
  - HYPERSENSITIVITY [None]
  - ASTHENIA [None]
  - CONGESTIVE CARDIOMYOPATHY [None]
  - DISTURBANCE IN ATTENTION [None]
  - DYSPNOEA EXERTIONAL [None]
  - PULMONARY OEDEMA [None]
  - OEDEMA PERIPHERAL [None]
